FAERS Safety Report 4362113-2 (Version None)
Quarter: 2004Q2

REPORT INFORMATION
  Report Type: 
  Country: None (occurrence: None)
  Receive Date: 20040517
  Receipt Date: 20040429
  Transmission Date: 20050107
  Serious: Yes (Death)
  Sender: FDA-Public Use
  Company Number: 190088

PATIENT
  Sex: Female

DRUGS (1)
  1. AVONEX     BIOGEN [Suspect]
     Indication: MULTIPLE SCLEROSIS
     Dates: start: 20000101, end: 20010301

REACTIONS (7)
  - ARRHYTHMIA [None]
  - ASPIRATION [None]
  - BACTERIAL INFECTION [None]
  - CELLULITIS [None]
  - DRUG INEFFECTIVE [None]
  - PAROTITIS [None]
  - PERITONEAL INFECTION [None]
